FAERS Safety Report 5300647-4 (Version None)
Quarter: 2007Q1

REPORT INFORMATION
  Report Type: 
  Country: None (occurrence: None)
  Receive Date: 20070201
  Receipt Date: 20061012
  Transmission Date: 20070707
  Serious: No
  Sender: FDA-Public Use
  Company Number: 2006PV023113

PATIENT
  Age: 49 Year
  Sex: Male
  Weight: 137.8935 kg

DRUGS (10)
  1. BYETTA [Suspect]
     Indication: DIABETES MELLITUS NON-INSULIN-DEPENDENT
     Dosage: SEE IMAGE
     Route: 058
     Dates: start: 20060801, end: 20060909
  2. BYETTA [Suspect]
     Indication: DIABETES MELLITUS NON-INSULIN-DEPENDENT
     Dosage: SEE IMAGE
     Route: 058
     Dates: start: 20060910
  3. GLYBURIDE [Concomitant]
  4. METFORMIN HCL [Concomitant]
  5. DIOVAN [Concomitant]
  6. SYNTHROID [Concomitant]
  7. PROTONIX [Concomitant]
  8. WATER PILL [Concomitant]
  9. POTASSIUM ACETATE [Concomitant]
  10. FOLIC ACID [Concomitant]

REACTIONS (3)
  - BLOOD GLUCOSE FLUCTUATION [None]
  - DECREASED APPETITE [None]
  - DRUG INEFFECTIVE FOR UNAPPROVED INDICATION [None]
